FAERS Safety Report 21499287 (Version 1)
Quarter: 2022Q4

REPORT INFORMATION
  Report Type: Spontaneous
  Country: AE (occurrence: AE)
  Receive Date: 20221024
  Receipt Date: 20221024
  Transmission Date: 20230113
  Serious: Yes (Death, Other)
  Sender: FDA-Public Use
  Company Number: AE-BAYER-2022A141109

PATIENT
  Age: 42 Month
  Sex: Female

DRUGS (1)
  1. CIPROFLOXACIN [Suspect]
     Active Substance: CIPROFLOXACIN
     Indication: Pneumonia pseudomonal
     Route: 048

REACTIONS (4)
  - Off label use [None]
  - Drug ineffective for unapproved indication [None]
  - Cardiopulmonary failure [Fatal]
  - Dependence on respirator [Fatal]
